FAERS Safety Report 13191320 (Version 1)
Quarter: 2017Q1

REPORT INFORMATION
  Report Type: Report from Study
  Country: US (occurrence: US)
  Receive Date: 20170207
  Receipt Date: 20170207
  Transmission Date: 20170428
  Serious: Yes (Life-Threatening, Other)
  Sender: FDA-Public Use
  Company Number: US-CONCORDIA PHARMACEUTICALS INC.-GSH201702-000818

PATIENT
  Sex: Male

DRUGS (2)
  1. DONNATAL [Suspect]
     Active Substance: ATROPINE SULFATE\HYOSCYAMINE SULFATE\PHENOBARBITAL\SCOPOLAMINE HYDROBROMIDE
     Indication: ABDOMINAL PAIN
     Dosage: 1.25-2.5 CC DONNATAL Q4 HRS
  2. DRAMAMINE [Suspect]
     Active Substance: DIMENHYDRINATE
     Indication: ABDOMINAL PAIN
     Dosage: 1.25-2.5 CC DRAMAMINE Q4 HRS

REACTIONS (3)
  - Apparent life threatening event [Recovered/Resolved]
  - Infantile apnoea [Recovered/Resolved]
  - Gastrooesophageal reflux disease [Recovered/Resolved]
